FAERS Safety Report 18641651 (Version 1)
Quarter: 2020Q4

REPORT INFORMATION
  Report Type: Report from Study
  Country: EG (occurrence: EG)
  Receive Date: 20201221
  Receipt Date: 20201221
  Transmission Date: 20210114
  Serious: Yes (Hospitalization, Other)
  Sender: FDA-Public Use
  Company Number: EG-GILEAD-2020-0509579

PATIENT
  Age: 55 Year
  Sex: Male

DRUGS (3)
  1. RIBAVIRIN. [Concomitant]
     Active Substance: RIBAVIRIN
  2. SOFOSBUVIR [Suspect]
     Active Substance: SOFOSBUVIR
     Indication: HEPATITIS C
     Dosage: 400 MG
     Route: 065
  3. DACLATASVIR. [Concomitant]
     Active Substance: DACLATASVIR

REACTIONS (2)
  - Hyperuricaemia [Recovering/Resolving]
  - Renal impairment [Recovering/Resolving]
